FAERS Safety Report 15345662 (Version 2)
Quarter: 2018Q4

REPORT INFORMATION
  Report Type: Spontaneous
  Country: JP (occurrence: JP)
  Receive Date: 20180904
  Receipt Date: 20181108
  Transmission Date: 20190204
  Serious: Yes (Hospitalization)
  Sender: FDA-Public Use
  Company Number: JP-ABBVIE-18S-087-2470017-00

PATIENT
  Age: 65 Year
  Sex: Female

DRUGS (1)
  1. DUODOPA [Suspect]
     Active Substance: CARBIDOPA\LEVODOPA
     Indication: PARKINSON^S DISEASE
     Route: 050
     Dates: start: 20170727

REACTIONS (4)
  - Bezoar [Unknown]
  - Device dislocation [Recovered/Resolved]
  - Medical device site ulcer [Unknown]
  - Device issue [Unknown]

NARRATIVE: CASE EVENT DATE: 20180829
